FAERS Safety Report 9202356 (Version 2)
Quarter: 2015Q4

REPORT INFORMATION
  Report Type: Spontaneous
  Country: IT (occurrence: IT)
  Receive Date: 20130401
  Receipt Date: 20151118
  Transmission Date: 20160305
  Serious: Yes (Hospitalization)
  Sender: FDA-Public Use
  Company Number: IT-ELI_LILLY_AND_COMPANY-IT201303007578

PATIENT
  Age: 75 Year
  Sex: Male

DRUGS (3)
  1. DELTACORTENE [Concomitant]
     Active Substance: PREDNISONE
     Indication: ARTHRITIS
     Dosage: 5 MG, UNK
     Route: 048
  2. HUMALOG [Suspect]
     Active Substance: INSULIN LISPRO
     Indication: DIABETES MELLITUS
     Dosage: 14 IU, QD
     Route: 058
     Dates: start: 20130215
  3. LANTUS [Suspect]
     Active Substance: INSULIN GLARGINE
     Indication: DIABETES MELLITUS
     Dosage: 35 U, UNKNOWN
     Route: 058

REACTIONS (3)
  - Agitation [Recovered/Resolved]
  - Hypoglycaemia [Recovered/Resolved]
  - Hyperhidrosis [Recovered/Resolved]

NARRATIVE: CASE EVENT DATE: 20130215
